FAERS Safety Report 8333137 (Version 2)
Quarter: 2013Q2

REPORT INFORMATION
  Report Type: Spontaneous
  Country: US (occurrence: US)
  Receive Date: 20111130
  Receipt Date: 20130429
  Transmission Date: 20140414
  Serious: Yes (Other)
  Sender: FDA-Public Use
  Company Number: US201107002488

PATIENT
  Age: 67 Year
  Sex: Female
  Weight: 103.86 kg

DRUGS (13)
  1. BYETTA PEN DISPOSABLE [Suspect]
     Dosage: FEB08-MAY09,07JAN09-07JAN09
     Dates: start: 200707, end: 200912
  2. IRON [Concomitant]
  3. TYLENOL [Concomitant]
  4. ATACAND [Concomitant]
  5. ATENOLOL [Concomitant]
  6. FOSAMAX [Concomitant]
     Dates: start: 20120119
  7. LASIX [Concomitant]
  8. NEURONTIN [Concomitant]
  9. POTASSIUM CHLORIDE [Concomitant]
  10. JANUVIA [Concomitant]
  11. SIMVASTATIN [Concomitant]
     Route: 048
  12. LEVOTHYROXIN [Concomitant]
  13. GLYBURIDE [Concomitant]

REACTIONS (3)
  - Renal failure chronic [Unknown]
  - Pancreatitis [Unknown]
  - Pain [Unknown]
